FAERS Safety Report 5407202-6 (Version None)
Quarter: 2007Q3

REPORT INFORMATION
  Report Type: 
  Country: None (occurrence: None)
  Receive Date: 20070807
  Receipt Date: 20070730
  Transmission Date: 20080115
  Serious: Yes (Other)
  Sender: FDA-Public Use
  Company Number: A0666893A

PATIENT
  Age: 76 Year
  Sex: Female

DRUGS (9)
  1. AVANDIA [Suspect]
     Dosage: 4MG PER DAY
     Route: 048
     Dates: start: 19990101
  2. ASPIRIN [Concomitant]
  3. METFORMIN HCL [Concomitant]
  4. EVISTA [Concomitant]
  5. LIPITOR [Concomitant]
  6. TRICOR [Concomitant]
  7. HYZAAR [Concomitant]
  8. LYRICA [Concomitant]
  9. HYDROCHLOROTHIAZIDE [Concomitant]

REACTIONS (5)
  - FATIGUE [None]
  - OEDEMA PERIPHERAL [None]
  - VISION BLURRED [None]
  - VISUAL ACUITY REDUCED [None]
  - VITREOUS FLOATERS [None]
